FAERS Safety Report 25364147 (Version 1)
Quarter: 2025Q2

REPORT INFORMATION
  Report Type: Spontaneous
  Country: NL (occurrence: NL)
  Receive Date: 20250527
  Receipt Date: 20250527
  Transmission Date: 20250717
  Serious: Yes (Other)
  Sender: TEVA
  Company Number: None

PATIENT
  Age: 73 Year
  Sex: Male
  Weight: 74 kg

DRUGS (1)
  1. OXYBUTYNIN [Suspect]
     Active Substance: OXYBUTYNIN
     Indication: Nocturia
     Dosage: BRAND NAME NOT SPECIFIED, 2 X PER DAY 1 PIECE
     Route: 048
     Dates: start: 20250506, end: 20250512

REACTIONS (4)
  - Urinary retention [Recovering/Resolving]
  - Dry mouth [Recovered/Resolved]
  - Urine flow decreased [Recovering/Resolving]
  - Dysphagia [Recovered/Resolved]
